FAERS Safety Report 25816980 (Version 1)
Quarter: 2025Q3

REPORT INFORMATION
  Report Type: Spontaneous
  Country: CN (occurrence: CN)
  Receive Date: 20250918
  Receipt Date: 20250918
  Transmission Date: 20251020
  Serious: Yes (Other)
  Sender: CSL BEHRING
  Company Number: CN-BEH-2025219052

PATIENT
  Age: 37 Year
  Sex: Female
  Weight: 79 kg

DRUGS (4)
  1. ALBURX [Suspect]
     Active Substance: ALBUMIN HUMAN
     Indication: Blood osmolarity increased
     Dosage: 10 G, OD
     Route: 041
     Dates: start: 20250830, end: 20250905
  2. ALBURX [Suspect]
     Active Substance: ALBUMIN HUMAN
     Indication: Hypoproteinaemia
  3. ALBURX [Suspect]
     Active Substance: ALBUMIN HUMAN
     Indication: Oliguria
  4. ALBURX [Suspect]
     Active Substance: ALBUMIN HUMAN
     Indication: Oedema

REACTIONS (11)
  - Chest discomfort [Recovering/Resolving]
  - Abdominal distension [Recovering/Resolving]
  - Nausea [Recovering/Resolving]
  - Respiratory rate increased [Recovering/Resolving]
  - Blood pressure increased [Recovering/Resolving]
  - Oxygen saturation decreased [Recovering/Resolving]
  - Heart rate increased [Recovering/Resolving]
  - Pain [Recovering/Resolving]
  - Eyelid oedema [Recovering/Resolving]
  - Breath sounds abnormal [Recovering/Resolving]
  - Oedema peripheral [Recovering/Resolving]

NARRATIVE: CASE EVENT DATE: 20250905
